FAERS Safety Report 6667448-6 (Version None)
Quarter: 2010Q1

REPORT INFORMATION
  Report Type: 
  Country: None (occurrence: None)
  Receive Date: 20100331
  Receipt Date: 20100316
  Transmission Date: 20100710
  Serious: Yes (Hospitalization)
  Sender: FDA-Public Use
  Company Number: 008725

PATIENT
  Age: 75 Year
  Sex: Female

DRUGS (7)
  1. PLETAL [Suspect]
     Indication: CEREBRAL INFARCTION
     Dosage: ORAL
     Route: 048
     Dates: start: 20080101, end: 20080101
  2. CALSLOT (MINDIPINE HYDROCHLORIDE) TABLET [Concomitant]
  3. LOSARTAN POTASSIUM [Concomitant]
  4. RIZE (CLOTIAZEPAM) [Concomitant]
  5. SERMION (NICERGOLINE) [Concomitant]
  6. DEPAS (ETIZOLAM) [Concomitant]
  7. AMOBAN (ZOPICLONE) [Concomitant]

REACTIONS (4)
  - GASTROINTESTINAL EROSION [None]
  - HAEMOGLOBIN ABNORMAL [None]
  - SMALL INTESTINAL HAEMORRHAGE [None]
  - SMALL INTESTINE ULCER [None]
